FAERS Safety Report 9004594 (Version 1)
Quarter: 2013Q1

REPORT INFORMATION
  Report Type: Spontaneous
  Country: US (occurrence: None)
  Receive Date: 20130103
  Receipt Date: 20130103
  Transmission Date: 20140127
  Serious: Yes (Life-Threatening, Disabling, Other)
  Sender: FDA-Public Use
  Company Number: None

PATIENT
  Age: 72 Year
  Sex: Female
  Weight: 105 kg

DRUGS (3)
  1. REQUIP [Suspect]
     Indication: RESTLESS LEGS SYNDROME
     Dosage: REQUIP 2 MG TID PO
     Route: 048
     Dates: start: 20120605, end: 20120608
  2. REQUIP [Suspect]
     Indication: FIBROMYALGIA
     Dosage: REQUIP 2 MG TID PO
     Route: 048
     Dates: start: 20120605, end: 20120608
  3. REQUIP [Suspect]
     Dosage: REQUIP 4 MG TID PO
     Route: 048
     Dates: start: 20120608, end: 20121231

REACTIONS (1)
  - Cardiac failure [None]
